FAERS Safety Report 25395675 (Version 6)
Quarter: 2025Q3

REPORT INFORMATION
  Report Type: Spontaneous
  Country: US (occurrence: US)
  Receive Date: 20250604
  Receipt Date: 20250923
  Transmission Date: 20251021
  Serious: Yes (Hospitalization)
  Sender: ROCHE
  Company Number: US-ROCHE-10000300038

PATIENT
  Age: 22 Year
  Sex: Female

DRUGS (5)
  1. XOLAIR [Suspect]
     Active Substance: OMALIZUMAB
     Indication: Chronic spontaneous urticaria
     Dosage: STRENGTH: 300 MG/2ML
     Route: 058
     Dates: start: 20250521
  2. XOLAIR [Suspect]
     Active Substance: OMALIZUMAB
  3. HAEGARDA [Concomitant]
     Active Substance: HUMAN C1-ESTERASE INHIBITOR
  4. ICATIBANT ACETATE [Concomitant]
     Active Substance: ICATIBANT ACETATE
  5. EPINEPHRINE AUTO-INJ [Concomitant]

REACTIONS (10)
  - Swelling face [Unknown]
  - Weight decreased [Unknown]
  - Eye swelling [Unknown]
  - Lip swelling [Unknown]
  - Swollen tongue [Unknown]
  - Vomiting [Unknown]
  - Abdominal distension [Unknown]
  - Swelling [Unknown]
  - Urticaria [Unknown]
  - Off label use [Unknown]

NARRATIVE: CASE EVENT DATE: 20250605
